FAERS Safety Report 6994323-X (Version None)
Quarter: 2010Q3

REPORT INFORMATION
  Report Type: 
  Country: None (occurrence: None)
  Receive Date: 20100917
  Receipt Date: 20100903
  Transmission Date: 20110219
  Serious: Yes (Hospitalization, Other)
  Sender: FDA-Public Use
  Company Number: PHHY2010TH55156

PATIENT
  Age: 68 Year
  Sex: Female

DRUGS (7)
  1. ACLASTA [Suspect]
     Dosage: UNK
     Dates: start: 20090729
  2. CALCIUM SANDOZ [Suspect]
     Dosage: 1X2 PC
     Dates: start: 20100729, end: 20100819
  3. NORGESIC [Concomitant]
     Dosage: 1X2 PC
  4. XANAX [Concomitant]
     Dosage: 0.5 MG HS
  5. MTV [Concomitant]
     Dosage: 1X2 PC
  6. TYLENOL [Concomitant]
     Dosage: 500 MG
  7. KENALONE [Concomitant]
     Dosage: UNK
     Dates: start: 20100729

REACTIONS (14)
  - ABSCESS DRAINAGE [None]
  - BACK PAIN [None]
  - BONE DENSITY DECREASED [None]
  - COMPRESSION FRACTURE [None]
  - DIZZINESS [None]
  - FALL [None]
  - GINGIVITIS [None]
  - HEADACHE [None]
  - MUSCULAR WEAKNESS [None]
  - NAUSEA [None]
  - OSTEOPENIA [None]
  - OSTEOPOROSIS [None]
  - PAIN IN EXTREMITY [None]
  - VOMITING [None]
